FAERS Safety Report 14134021 (Version 2)
Quarter: 2017Q4

REPORT INFORMATION
  Report Type: Report from Study
  Country: HU (occurrence: HU)
  Receive Date: 20171026
  Receipt Date: 20171030
  Transmission Date: 20180321
  Serious: Yes (Hospitalization)
  Sender: FDA-Public Use
  Company Number: HU-REGENERON PHARMACEUTICALS, INC.-2017-25052

PATIENT

DRUGS (52)
  1. EYLEA [Suspect]
     Active Substance: AFLIBERCEPT
     Dosage: 50 ?L, ONCE, LEFT (OS)
     Route: 031
     Dates: start: 20160406, end: 20160406
  2. RASAGILINE. [Concomitant]
     Active Substance: RASAGILINE
     Indication: PARKINSONISM
     Dosage: 1 MG, QD
     Route: 048
     Dates: start: 20171011
  3. TOBRADEX [Concomitant]
     Active Substance: DEXAMETHASONE\TOBRAMYCIN
     Dosage: 1 DROP THREE TIMES A DAY, LEFT EYE (OS)
     Route: 047
     Dates: start: 20171018
  4. BETADINE [Concomitant]
     Active Substance: POVIDONE-IODINE
     Dosage: 5 %, PRN, GTT, LEFT EYE
     Route: 047
     Dates: start: 20170309
  5. EYLEA [Suspect]
     Active Substance: AFLIBERCEPT
     Dosage: 50 ?L, ONCE, LEFT (OS)
     Route: 031
     Dates: start: 20160309, end: 20160309
  6. EYLEA [Suspect]
     Active Substance: AFLIBERCEPT
     Dosage: 50 ?L, ONCE, LEFT (OS)
     Dates: start: 20160602, end: 20160602
  7. EYLEA [Suspect]
     Active Substance: AFLIBERCEPT
     Dosage: 50 ?L, ONCE, LEFT (OS)
     Route: 031
     Dates: start: 20170112, end: 20170112
  8. METAMIZOLE SODIUM [Concomitant]
     Active Substance: METAMIZOLE SODIUM
     Indication: PRODUCT USED FOR UNKNOWN INDICATION
     Dosage: UNK UNK, PRN
     Route: 054
     Dates: start: 2001
  9. AMLODIPINE [Concomitant]
     Active Substance: AMLODIPINE BESYLATE
     Indication: HYPERTENSION
     Dosage: 8/10/2.5 MG
     Route: 048
     Dates: start: 2015
  10. DICLOFENAC [Concomitant]
     Active Substance: DICLOFENAC
     Indication: PRODUCT USED FOR UNKNOWN INDICATION
     Dosage: 100 MG, PRN
     Route: 048
     Dates: start: 2009
  11. FLUORESCEIN [Concomitant]
     Active Substance: FLUORESCEIN
     Dosage: UNK UNK, ONCE
     Route: 042
     Dates: start: 20170210
  12. ALFUZOSIN [Concomitant]
     Active Substance: ALFUZOSIN
     Indication: BENIGN PROSTATIC HYPERPLASIA
     Dosage: 10 MG, QD
     Route: 048
     Dates: start: 20170206, end: 20171010
  13. AMLODIPINE BESILATE [Concomitant]
     Active Substance: AMLODIPINE BESYLATE
     Indication: HYPERTENSION
     Dosage: 8/10/2.5 MG
     Route: 048
     Dates: start: 2015
  14. PERINDOPRIL ERBUMINE. [Concomitant]
     Active Substance: PERINDOPRIL ERBUMINE
     Indication: HYPERTENSION
     Dosage: 8/10/2.5 MG
     Route: 048
     Dates: start: 2015
  15. EBRANTIL [Concomitant]
     Active Substance: URAPIDIL
     Indication: HYPERTENSION
     Dosage: 30 MG, TID
     Route: 048
     Dates: start: 20171011
  16. ZOLPIDEM TARTRATE. [Concomitant]
     Active Substance: ZOLPIDEM TARTRATE
     Dosage: 10 MG, QD
     Route: 048
     Dates: start: 20171011
  17. EYLEA [Suspect]
     Active Substance: AFLIBERCEPT
     Dosage: 50 ?L, ONCE, LEFT (OS)
     Route: 031
     Dates: start: 20160505, end: 20160505
  18. EYLEA [Suspect]
     Active Substance: AFLIBERCEPT
     Dosage: 50 ?L, ONCE, LEFT (OS)
     Dates: start: 20160727, end: 20160727
  19. EYLEA [Suspect]
     Active Substance: AFLIBERCEPT
     Dosage: 50 ?L, ONCE, LEFT (OS)
     Route: 031
     Dates: start: 20160922, end: 20160922
  20. GLIMEPIRIDE. [Concomitant]
     Active Substance: GLIMEPIRIDE
     Indication: PRODUCT USED FOR UNKNOWN INDICATION
     Dosage: 2 MG, BID
     Route: 048
     Dates: start: 1990
  21. HUMACAIN [Concomitant]
     Indication: PRODUCT USED FOR UNKNOWN INDICATION
     Dosage: PRN, BILATERAL (OU)
     Route: 047
     Dates: start: 20170210
  22. FLUORESCEIN [Concomitant]
     Active Substance: FLUORESCEIN
     Indication: PRODUCT USED FOR UNKNOWN INDICATION
     Dosage: UNK UNK, PRN, STRIP, BILATERAL (OU)
     Route: 047
     Dates: start: 20170210
  23. SERMION                            /00396401/ [Concomitant]
     Active Substance: NICERGOLINE
     Indication: DIABETIC NEUROPATHY
     Dosage: 30 MG, QD
     Route: 048
     Dates: start: 20160427, end: 20171011
  24. PRAMIPEXOLE DIHYDROCHLORIDE. [Concomitant]
     Active Substance: PRAMIPEXOLE DIHYDROCHLORIDE
     Indication: PARKINSONISM
     Dosage: 0.18 MG, TID
     Route: 048
     Dates: start: 20160505, end: 20171010
  25. NOOTROPIL [Concomitant]
     Active Substance: PIRACETAM
     Indication: ENCEPHALOPATHY
  26. EBRANTIL                           /00631801/ [Concomitant]
     Active Substance: URAPIDIL
     Indication: HYPERTENSION
     Dosage: 30 MG, TID
     Route: 048
     Dates: start: 20171011
  27. CORYOL [Concomitant]
     Active Substance: CARVEDILOL
     Indication: HYPERTENSION
     Dosage: 12.5 MG, BID
     Route: 048
     Dates: start: 1995
  28. VITAMIN B12 [Concomitant]
     Active Substance: CYANOCOBALAMIN
     Indication: CAROTID ARTERY STENOSIS
     Dosage: 1000 ML, OM
     Route: 058
     Dates: start: 20171011
  29. ASPIRIN. [Concomitant]
     Active Substance: ASPIRIN
     Indication: MYOCARDIAL ISCHAEMIA
     Dosage: 100 MG, QD
     Route: 048
     Dates: start: 2016
  30. INDAPAMIDE. [Concomitant]
     Active Substance: INDAPAMIDE
     Indication: HYPERTENSION
     Dosage: 8/10/2.5 MG
     Route: 048
     Dates: start: 2015
  31. MERCKFORMIN [Concomitant]
     Active Substance: METFORMIN HYDROCHLORIDE
     Indication: PRODUCT USED FOR UNKNOWN INDICATION
     Dosage: 850 MG, TID
     Route: 048
     Dates: start: 1990
  32. BETADINE [Concomitant]
     Active Substance: POVIDONE-IODINE
     Indication: PRODUCT USED FOR UNKNOWN INDICATION
     Dosage: 5 %, PRN, GTT, LEFT EYE
     Route: 047
     Dates: start: 20170309
  33. TOBRADEX [Concomitant]
     Active Substance: DEXAMETHASONE\TOBRAMYCIN
     Indication: PRODUCT USED FOR UNKNOWN INDICATION
     Dosage: 1 DROP FIVE TIMES A DAY, LEFT EYE (OS)
     Route: 047
     Dates: start: 20171012, end: 20171017
  34. EYLEA [Suspect]
     Active Substance: AFLIBERCEPT
     Dosage: 50 ?L, ONCE, , LEFT (OS)
     Route: 031
     Dates: start: 20161117, end: 20161117
  35. FERRO FOLGAMMA [Concomitant]
     Indication: PRODUCT USED FOR UNKNOWN INDICATION
     Dosage: 114 MG, QD
     Route: 048
     Dates: start: 2014
  36. NITRO-DUR [Concomitant]
     Active Substance: NITROGLYCERIN
     Indication: MYOCARDIAL ISCHAEMIA
     Dosage: 10 MG /24 H PATCH 1/2 DAY
     Route: 062
     Dates: start: 2015
  37. NEOSYNEPHRINE [Concomitant]
     Active Substance: PHENYLEPHRINE HYDROCHLORIDE
     Indication: PRODUCT USED FOR UNKNOWN INDICATION
     Dosage: PRN, BILATERAL (OU)
     Route: 047
     Dates: start: 20170210
  38. CHINOTAL [Concomitant]
     Active Substance: PENTOXIFYLLINE
     Indication: DIABETIC VASCULAR DISORDER
     Dosage: 400 MG, BID
     Route: 048
     Dates: start: 20161122
  39. CAVINTON [Concomitant]
     Active Substance: VINPOCETINE
     Indication: ENCEPHALITIS
     Dosage: 10 MG, TID
     Route: 048
     Dates: start: 20171011
  40. SERMION [Concomitant]
     Active Substance: NICERGOLINE
     Indication: DIABETIC NEUROPATHY
     Dosage: 30 MG, QD
     Route: 048
     Dates: start: 20160427, end: 20171011
  41. EYLEA [Suspect]
     Active Substance: AFLIBERCEPT
     Indication: DIABETIC RETINAL OEDEMA
     Dosage: 50 ?L, ONCE, LEFT (OS)
     Route: 031
     Dates: start: 20160211, end: 20160211
  42. CORYOL                             /00984501/ [Concomitant]
     Active Substance: CARVEDILOL
     Indication: HYPERTENSION
     Dosage: 12.5 MG, BID
     Route: 048
     Dates: start: 1995
  43. PANTOPRAZOLE [Concomitant]
     Active Substance: PANTOPRAZOLE
     Indication: PRODUCT USED FOR UNKNOWN INDICATION
     Dosage: 20 MG, QD
     Route: 048
     Dates: start: 20171011
  44. ZOLPIDEM [Concomitant]
     Active Substance: ZOLPIDEM\ZOLPIDEM TARTRATE
     Indication: PRODUCT USED FOR UNKNOWN INDICATION
     Dosage: 10 MG, QD
     Route: 048
     Dates: start: 20171011
  45. TROPICAMIDE. [Concomitant]
     Active Substance: TROPICAMIDE
     Indication: PRODUCT USED FOR UNKNOWN INDICATION
     Dosage: PRN, BILATERAL (OU)
     Route: 047
     Dates: start: 20170210
  46. THIOGAMMA [Concomitant]
     Active Substance: THIOCTIC ACID
     Indication: DIABETIC NEUROPATHY
     Dosage: 600 MG, QD
     Route: 048
     Dates: start: 20160427
  47. PENTOXYL [Concomitant]
     Active Substance: PENTOXIFYLLINE
     Indication: PRODUCT USED FOR UNKNOWN INDICATION
     Dosage: 400 MG, BID
     Route: 048
     Dates: start: 20160331
  48. NOOTROPIL [Concomitant]
     Active Substance: PIRACETAM
     Indication: ENCEPHALITIS
     Dosage: 1200 MG, BID
     Route: 048
     Dates: start: 20171011
  49. VITAMIN B12 [Concomitant]
     Active Substance: CYANOCOBALAMIN
     Indication: CAROTID ARTERY STENOSIS
     Dosage: 1000 ML, OM
     Route: 058
     Dates: start: 20171011
  50. DOXAZOSIN RATIOPHARM [Concomitant]
     Indication: HYPERTENSION
     Dosage: 4 MG, QD
     Route: 048
     Dates: start: 2010
  51. ATORVASTATIN [Concomitant]
     Active Substance: ATORVASTATIN
     Indication: PRODUCT USED FOR UNKNOWN INDICATION
     Dosage: 5 MG, QD
     Dates: start: 2001
  52. PERINDOPRIL [Concomitant]
     Active Substance: PERINDOPRIL
     Indication: HYPERTENSION
     Dosage: 8/10/2.5 MG
     Route: 048
     Dates: start: 2015

REACTIONS (1)
  - Cataract [Recovered/Resolved]

NARRATIVE: CASE EVENT DATE: 20171012
